FAERS Safety Report 20152209 (Version 2)
Quarter: 2021Q4

REPORT INFORMATION
  Report Type: Spontaneous
  Country: SK (occurrence: None)
  Receive Date: 20211206
  Receipt Date: 20211209
  Transmission Date: 20220304
  Serious: Yes (Other)
  Sender: FDA-Public Use
  Company Number: SK-ROCHE-2965628

PATIENT
  Age: 35 Year
  Sex: Male

DRUGS (3)
  1. OCREVUS [Suspect]
     Active Substance: OCRELIZUMAB
     Indication: Relapsing-remitting multiple sclerosis
     Route: 042
     Dates: start: 20210830, end: 20210914
  2. OMALIZUMAB [Suspect]
     Active Substance: OMALIZUMAB
     Indication: Chronic spontaneous urticaria
     Dosage: ON 09/AUG/2021, HE RECEIVED MOST RECENT DOSE OF OMALIZUMAB
     Route: 065
  3. GLATIRAMER ACETATE [Concomitant]
     Active Substance: GLATIRAMER ACETATE

REACTIONS (2)
  - Multiple sclerosis [Unknown]
  - Urticaria [Unknown]

NARRATIVE: CASE EVENT DATE: 20211026
